FAERS Safety Report 9494605 (Version 3)
Quarter: 2013Q3

REPORT INFORMATION
  Report Type: Spontaneous
  Country: GB (occurrence: GB)
  Receive Date: 20130903
  Receipt Date: 20130920
  Transmission Date: 20140515
  Serious: Yes (Other)
  Sender: FDA-Public Use
  Company Number: GB-PFIZER INC-2013250381

PATIENT
  Sex: Female

DRUGS (1)
  1. LYRICA [Suspect]
     Dosage: 3000 MG, DAILY

REACTIONS (4)
  - Drug abuse [Unknown]
  - Feeling jittery [Unknown]
  - Nervousness [Unknown]
  - Drug withdrawal syndrome [Unknown]
